FAERS Safety Report 8611768-2 (Version None)
Quarter: 2012Q3

REPORT INFORMATION
  Report Type: 
  Country: None (occurrence: None)
  Receive Date: 20120822
  Receipt Date: 20120814
  Transmission Date: 20120928
  Serious: Yes (Hospitalization)
  Sender: FDA-Public Use
  Company Number: US-BAYER-2012-032287

PATIENT
  Age: 33 Year
  Sex: Female
  Weight: 92.971 kg

DRUGS (10)
  1. TYLENOL [Concomitant]
     Dosage: UNK
     Dates: start: 20090321
  2. KEFLEX [Concomitant]
     Dosage: UNK UNK, QID
     Dates: start: 20090319
  3. LEVAQUIN [Concomitant]
     Dosage: 500 MG, QD
     Route: 048
     Dates: start: 20090321
  4. DROSPIRENONE AND ETHINYL ESTRADIOL [Suspect]
     Dosage: UNK
     Dates: start: 20080701
  5. YAZ [Suspect]
     Dosage: UNK
     Dates: start: 20071201
  6. ALLEGRA [Concomitant]
     Dosage: UNK
     Dates: start: 20090321
  7. PROZAC [Concomitant]
     Indication: ANXIETY
     Dosage: UNK
     Dates: start: 20090321
  8. MULTI-VITAMINS [Concomitant]
     Dosage: UNK
     Dates: start: 20090321
  9. YASMIN [Suspect]
     Dosage: 3-0.03MG
  10. PERCOCET [Concomitant]
     Indication: PAIN
     Dosage: 5/325, 1-2 TABS PO Q4-6H PRN; ONE PILL PRN
     Route: 048
     Dates: start: 20090319

REACTIONS (3)
  - PULMONARY EMBOLISM [None]
  - PAIN [None]
  - INJURY [None]
